FAERS Safety Report 16940202 (Version 1)
Quarter: 2019Q4

REPORT INFORMATION
  Report Type: Spontaneous
  Country: DK (occurrence: DK)
  Receive Date: 20191021
  Receipt Date: 20191021
  Transmission Date: 20200122
  Serious: Yes (Death, Life-Threatening, Hospitalization)
  Sender: FDA-Public Use
  Company Number: DK-HTU-2019DK019681

PATIENT
  Age: 74 Year
  Sex: Male

DRUGS (5)
  1. AKYNZEO [Suspect]
     Active Substance: NETUPITANT\PALONOSETRON HYDROCHLORIDE
     Indication: PROPHYLAXIS OF NAUSEA AND VOMITING
     Dosage: 1 DOSAGE FORM, SINGLE
     Route: 048
     Dates: start: 20190828
  2. CARBOPLATIN ^ACCORD^ [Suspect]
     Active Substance: CARBOPLATIN
     Indication: NON-SMALL CELL LUNG CANCER
     Dosage: 495 MILLIGRAM
     Route: 042
     Dates: start: 20190828
  3. METOPROLOL TARTRATE. [Concomitant]
     Active Substance: METOPROLOL TARTRATE
     Indication: CARDIAC DISORDER
     Route: 048
     Dates: start: 20190810
  4. NAVELBINE [Interacting]
     Active Substance: VINORELBINE TARTRATE
     Indication: NON-SMALL CELL LUNG CANCER
     Dosage: 110 MILLIGRAM
     Route: 048
     Dates: start: 20190828
  5. DIGOXIN ^DAK^ [Concomitant]
     Active Substance: DIGOXIN
     Indication: ARRHYTHMIA
     Dosage: 312 MICROGRAM, UNKNOWN
     Route: 048
     Dates: start: 20190811

REACTIONS (12)
  - Septic shock [Fatal]
  - Neutropenia [Fatal]
  - Dyspnoea [Not Recovered/Not Resolved]
  - Neutropenic colitis [Fatal]
  - Pulmonary oedema [Fatal]
  - Drug interaction [Unknown]
  - Sepsis [Fatal]
  - Blood bilirubin increased [Not Recovered/Not Resolved]
  - Pyrexia [Not Recovered/Not Resolved]
  - Stomatitis [Not Recovered/Not Resolved]
  - Fluid overload [Not Recovered/Not Resolved]
  - Rectal haemorrhage [Fatal]

NARRATIVE: CASE EVENT DATE: 201909
